FAERS Safety Report 6124957-6 (Version None)
Quarter: 2009Q1

REPORT INFORMATION
  Report Type: 
  Country: None (occurrence: None)
  Receive Date: 20090319
  Receipt Date: 20090315
  Transmission Date: 20090719
  Serious: No
  Sender: FDA-Public Use
  Company Number: US-B.I. PHARMACEUTICALS,INC./RIDGEFIELD-2009-BP-03218BP

PATIENT
  Sex: Female

DRUGS (3)
  1. ZANTAC 75 [Suspect]
     Indication: FLATULENCE
     Dosage: 150MG
     Route: 048
     Dates: start: 20090306
  2. ZANTAC 75 [Suspect]
     Dosage: 225MG
     Route: 048
     Dates: start: 20090315, end: 20090315
  3. UNSPECIFIED MEDICATIONS [Concomitant]

REACTIONS (4)
  - BLOOD PRESSURE INCREASED [None]
  - FEELING ABNORMAL [None]
  - INCORRECT DOSE ADMINISTERED [None]
  - NERVOUSNESS [None]
